FAERS Safety Report 7191850-X (Version None)
Quarter: 2010Q4

REPORT INFORMATION
  Report Type: 
  Country: None (occurrence: None)
  Receive Date: 20101223
  Receipt Date: 20101217
  Transmission Date: 20110411
  Serious: Yes (Hospitalization)
  Sender: FDA-Public Use
  Company Number: IT-PFIZER INC-2010175484

PATIENT
  Age: 59 Year
  Sex: Female
  Weight: 67 kg

DRUGS (7)
  1. CP-751,871 [Suspect]
     Indication: BREAST CANCER
     Dosage: 1340 MG, EVERY 3 WEEKS
     Route: 042
     Dates: start: 20100302
  2. EXEMESTANE [Suspect]
     Indication: BREAST CANCER
     Dosage: 25 MG, 1X/DAY
     Route: 048
     Dates: start: 20100302, end: 20101215
  3. FULVESTRANT [Concomitant]
     Indication: BREAST CANCER
     Dosage: UNK
     Route: 042
  4. ATENOLOL [Concomitant]
     Indication: HYPERTENSION
     Dosage: UNK
     Dates: start: 20000601
  5. SEACOR [Concomitant]
     Indication: HYPERCHOLESTEROLAEMIA
     Dosage: UNK
     Dates: start: 20060101
  6. MODURETIC 5-50 [Concomitant]
     Indication: HYPERTENSION
     Dosage: UNK
     Dates: start: 20000601
  7. NULERON [Concomitant]
     Indication: PROPHYLAXIS
     Dosage: UNK
     Dates: start: 20091215

REACTIONS (2)
  - APHASIA [None]
  - EPILEPSY [None]
